FAERS Safety Report 17027551 (Version 1)
Quarter: 2019Q4

REPORT INFORMATION
  Report Type: Spontaneous
  Country: US (occurrence: US)
  Receive Date: 20191113
  Receipt Date: 20191113
  Transmission Date: 20200122
  Serious: No
  Sender: FDA-Public Use
  Company Number: US-TEVA-2019-US-1136143

PATIENT
  Sex: Female

DRUGS (14)
  1. PROVENTIL [Concomitant]
     Active Substance: ALBUTEROL
  2. VITAMIN D3 [Concomitant]
     Active Substance: CHOLECALCIFEROL
  3. ABILIFY [Concomitant]
     Active Substance: ARIPIPRAZOLE
  4. LISINOPRIL. [Concomitant]
     Active Substance: LISINOPRIL
  5. WELLBUTRIN [Concomitant]
     Active Substance: BUPROPION HYDROCHLORIDE
  6. XYZAL [Concomitant]
     Active Substance: LEVOCETIRIZINE DIHYDROCHLORIDE
  7. ADDERALL [Concomitant]
     Active Substance: AMPHETAMINE ASPARTATE\AMPHETAMINE SULFATE\DEXTROAMPHETAMINE SACCHARATE\DEXTROAMPHETAMINE SULFATE
  8. SYNTHROID [Concomitant]
     Active Substance: LEVOTHYROXINE SODIUM
  9. FLOVENT [Concomitant]
     Active Substance: FLUTICASONE PROPIONATE
  10. METOPROLOL TARTRATE. [Concomitant]
     Active Substance: METOPROLOL TARTRATE
  11. ZOLOFT [Concomitant]
     Active Substance: SERTRALINE HYDROCHLORIDE
  12. PRILOSEC [Concomitant]
     Active Substance: OMEPRAZOLE MAGNESIUM
  13. COPAXONE [Suspect]
     Active Substance: GLATIRAMER ACETATE
     Indication: MULTIPLE SCLEROSIS
     Dosage: QOD (EVERY OTHER DAY)
     Route: 058
  14. COPAXONE [Suspect]
     Active Substance: GLATIRAMER ACETATE
     Dosage: 20 MILLIGRAM/MILLILITERS DAILY;
     Route: 058
     Dates: start: 20150918

REACTIONS (2)
  - Skin discolouration [Not Recovered/Not Resolved]
  - Off label use [Unknown]
